FAERS Safety Report 17371946 (Version 1)
Quarter: 2020Q1

REPORT INFORMATION
  Report Type: Spontaneous
  Country: US (occurrence: US)
  Receive Date: 20200205
  Receipt Date: 20200205
  Transmission Date: 20200409
  Serious: No
  Sender: FDA-Public Use
  Company Number: US-BAYER-2020-019509

PATIENT
  Sex: Female

DRUGS (4)
  1. CLARITIN [Suspect]
     Active Substance: LORATADINE
     Indication: NASOPHARYNGITIS
  2. CLARITIN [Suspect]
     Active Substance: LORATADINE
     Indication: HYPERSENSITIVITY
     Dosage: 1 DF, QD
     Route: 048
     Dates: start: 20200202, end: 20200203
  3. CHLORPHENIRAMINE [CHLORPHENAMINE] [Suspect]
     Active Substance: CHLORPHENIRAMINE
     Dosage: UNK
  4. TEGRETOL [Suspect]
     Active Substance: CARBAMAZEPINE
     Dosage: UNK

REACTIONS (6)
  - Nasal congestion [Unknown]
  - Dizziness [Unknown]
  - Head discomfort [Unknown]
  - Limb discomfort [Unknown]
  - Feeling abnormal [None]
  - Somnolence [Unknown]

NARRATIVE: CASE EVENT DATE: 20200203
